FAERS Safety Report 20409942 (Version 3)
Quarter: 2022Q1

REPORT INFORMATION
  Report Type: Spontaneous
  Country: US (occurrence: US)
  Receive Date: 20220201
  Receipt Date: 20220213
  Transmission Date: 20220423
  Serious: Yes (Other)
  Sender: FDA-Public Use
  Company Number: US-SA-SAC20220128000180

PATIENT
  Age: 71 Year
  Sex: Female

DRUGS (15)
  1. DUPIXENT [Suspect]
     Active Substance: DUPILUMAB
     Indication: Asthma
     Dosage: 300 MG, QOW
     Route: 058
     Dates: start: 202112
  2. DUPIXENT [Suspect]
     Active Substance: DUPILUMAB
     Indication: Chronic obstructive pulmonary disease
     Dosage: 300 MG, QOW
     Route: 058
     Dates: start: 20211214, end: 20220125
  3. DUPIXENT [Suspect]
     Active Substance: DUPILUMAB
     Indication: Dermatitis atopic
  4. METHOTREXATE [Concomitant]
     Active Substance: METHOTREXATE
  5. CEFDINIR [Concomitant]
     Active Substance: CEFDINIR
  6. FLUCONAZOLE [Concomitant]
     Active Substance: FLUCONAZOLE
  7. BUDESONIDE [Concomitant]
     Active Substance: BUDESONIDE
  8. BENZONATATE [Concomitant]
     Active Substance: BENZONATATE
  9. LIDOCAINE [Concomitant]
     Active Substance: LIDOCAINE
  10. CEFTRIAXONE [Concomitant]
     Active Substance: CEFTRIAXONE
  11. CLOBETASOL [Concomitant]
     Active Substance: CLOBETASOL
  12. TACROLIMUS [Concomitant]
     Active Substance: TACROLIMUS
     Dosage: 0.1 %
  13. FOLIC ACID [Concomitant]
     Active Substance: FOLIC ACID
  14. ALBUTEROL SULFATE [Concomitant]
     Active Substance: ALBUTEROL SULFATE
  15. VITAMIN D3 [Concomitant]
     Active Substance: CHOLECALCIFEROL

REACTIONS (7)
  - Pneumonia fungal [Unknown]
  - Injection site pain [Unknown]
  - Skin disorder [Unknown]
  - Condition aggravated [Unknown]
  - Hypersensitivity [Unknown]
  - Rash [Unknown]
  - Product use in unapproved indication [Unknown]

NARRATIVE: CASE EVENT DATE: 20211201
